FAERS Safety Report 4376358-9 (Version None)
Quarter: 2004Q2

REPORT INFORMATION
  Report Type: 
  Country: None (occurrence: None)
  Receive Date: 20040612
  Receipt Date: 20040602
  Transmission Date: 20050107
  Serious: Yes (Hospitalization, Disabling)
  Sender: FDA-Public Use
  Company Number: US-JNJFOC-20040505096

PATIENT
  Sex: Female
  Weight: 94.35 kg

DRUGS (16)
  1. BLINDED; INFLIXIMAB, RECOMBINANT [Suspect]
     Route: 042
  2. BLINDED; INFLIXIMAB, RECOMBINANT [Suspect]
     Route: 042
  3. BLINDED; INFLIXIMAB, RECOMBINANT [Suspect]
     Route: 042
  4. BLINDED; INFLIXIMAB, RECOMBINANT [Suspect]
     Route: 042
  5. BLINDED; INFLIXIMAB, RECOMBINANT [Suspect]
     Route: 042
  6. BLINDED; INFLIXIMAB, RECOMBINANT [Suspect]
     Indication: PSORIASIS
     Route: 042
  7. PLACEBO [Suspect]
     Route: 042
  8. PLACEBO [Suspect]
     Route: 042
  9. PLACEBO [Suspect]
     Route: 042
  10. PLACEBO [Suspect]
     Route: 042
  11. PLACEBO [Suspect]
     Route: 042
  12. PLACEBO [Suspect]
     Indication: PSORIASIS
     Route: 042
  13. BENICAR [Concomitant]
     Indication: HYPERTENSION
     Route: 049
  14. TRIAMTERENE [Concomitant]
     Indication: HYPERTENSION
     Route: 049
  15. CLARITIN [Concomitant]
     Indication: SEASONAL ALLERGY
     Route: 049
  16. ORTHO-EST [Concomitant]
     Indication: HORMONE REPLACEMENT THERAPY
     Route: 049

REACTIONS (4)
  - BREAST CANCER [None]
  - LUNG INFECTION [None]
  - POSTOPERATIVE INFECTION [None]
  - STAPHYLOCOCCAL INFECTION [None]
